FAERS Safety Report 7920108-3 (Version None)
Quarter: 2011Q4

REPORT INFORMATION
  Report Type: 
  Country: None (occurrence: None)
  Receive Date: 20111117
  Receipt Date: 20111109
  Transmission Date: 20120403
  Serious: Yes (Other)
  Sender: FDA-Public Use
  Company Number: MX-SANOFI-AVENTIS-2011SA073819

PATIENT
  Age: 59 Year
  Sex: Female
  Weight: 72 kg

DRUGS (6)
  1. METFORMIN HCL [Concomitant]
     Indication: TYPE 2 DIABETES MELLITUS
     Route: 048
  2. LANTUS [Suspect]
     Indication: TYPE 2 DIABETES MELLITUS
     Route: 058
     Dates: start: 20070101
  3. BEZAFIBRATE [Concomitant]
     Dosage: 2 TABLET = 400 MG
     Route: 048
  4. PRAVASTATIN [Concomitant]
     Route: 048
  5. TIMOLOL MALEATE [Concomitant]
     Indication: GLAUCOMA
     Dosage: 5 MG / 1ML EYE DROPS
     Route: 047
     Dates: start: 20070101
  6. GLYBURIDE [Concomitant]
     Indication: TYPE 2 DIABETES MELLITUS
     Route: 048

REACTIONS (6)
  - SALIVARY GLAND CANCER [None]
  - DEPRESSION [None]
  - DRUG ADMINISTRATION ERROR [None]
  - HYPERTENSION [None]
  - GLYCOSYLATED HAEMOGLOBIN INCREASED [None]
  - HYPOGLYCAEMIA [None]
